FAERS Safety Report 7067953-7 (Version None)
Quarter: 2010Q4

REPORT INFORMATION
  Report Type: 
  Country: None (occurrence: None)
  Receive Date: 20101020
  Receipt Date: 20101007
  Transmission Date: 20110411
  Serious: Yes (Hospitalization)
  Sender: FDA-Public Use
  Company Number: B0678177A

PATIENT
  Age: 56 Year
  Sex: Female

DRUGS (3)
  1. METOCLOPRAMIDE (FORMULATION UNKNOWN) (GENERIC) [Suspect]
     Indication: ANTIEMETIC SUPPORTIVE CARE
     Dosage: 30 MG PER DAY
  2. ONDANSETRON HYDROCHLORIDE [Suspect]
     Indication: ANTIEMETIC SUPPORTIVE CARE
     Dosage: 16 MG PER DAY
  3. CANCER CHEMOTHERAPY [Concomitant]

REACTIONS (5)
  - ANXIETY [None]
  - DYSKINESIA [None]
  - DYSTONIA [None]
  - MUSCLE TWITCHING [None]
  - NAUSEA [None]
